FAERS Safety Report 4416591-0 (Version None)
Quarter: 2004Q2

REPORT INFORMATION
  Report Type: 
  Country: None (occurrence: None)
  Receive Date: 20040630
  Receipt Date: 20040511
  Transmission Date: 20050107
  Serious: No
  Sender: FDA-Public Use
  Company Number: 04P-163-0260565-00

PATIENT
  Age: 59 Year
  Sex: Female
  Weight: 85.7298 kg

DRUGS (6)
  1. HUMIRA [Suspect]
     Indication: RHEUMATOID ARTHRITIS
     Dosage: 40 MG, 1 IN 1 WK, SUBCUTANEOUS
     Route: 058
     Dates: start: 20040101, end: 20040401
  2. HUMIRA [Suspect]
     Indication: RHEUMATOID ARTHRITIS
     Dosage: 40 MG, 1 IN 1 WK, SUBCUTANEOUS
     Route: 058
     Dates: start: 20040401
  3. PREDNISONE [Concomitant]
  4. METHOTREXATE [Concomitant]
  5. HYDROXYCHLOROQUINE PHOSPHATE [Concomitant]
  6. HUMULIN 70/30 [Concomitant]

REACTIONS (3)
  - BONE INFECTION [None]
  - CONDITION AGGRAVATED [None]
  - LOCALISED INFECTION [None]
